FAERS Safety Report 8407170-9 (Version None)
Quarter: 2012Q2

REPORT INFORMATION
  Report Type: 
  Country: None (occurrence: None)
  Receive Date: 20120604
  Receipt Date: 20120525
  Transmission Date: 20120825
  Serious: Yes (Death, Life-Threatening, Hospitalization)
  Sender: FDA-Public Use
  Company Number: JP-CELGENEUS-087-50794-12042112

PATIENT
  Sex: Male
  Weight: 60 kg

DRUGS (16)
  1. MAGMITT [Concomitant]
     Route: 065
     Dates: end: 20120212
  2. EXJADE [Concomitant]
     Route: 065
     Dates: end: 20120212
  3. MAXIPIME [Concomitant]
     Route: 065
     Dates: start: 20111219, end: 20111226
  4. MAXIPIME [Concomitant]
     Route: 065
     Dates: start: 20120125, end: 20120130
  5. DORIPENEM MONOHYDRATE [Concomitant]
     Route: 065
     Dates: start: 20111206, end: 20120105
  6. VIDAZA [Suspect]
     Dosage: 75 MILLIGRAM/SQ. METER
     Route: 058
     Dates: start: 20111212, end: 20111218
  7. BISOPROLOL FUMARATE [Concomitant]
     Route: 065
     Dates: end: 20120212
  8. ALLOPURINOL [Concomitant]
     Route: 065
     Dates: end: 20120212
  9. LANIRAPID [Concomitant]
     Route: 065
     Dates: end: 20120212
  10. TORSEMIDE [Concomitant]
     Route: 065
     Dates: end: 20120212
  11. PASIL [Concomitant]
     Route: 065
     Dates: start: 20120105, end: 20120124
  12. GRAN [Concomitant]
     Route: 065
     Dates: start: 20111222, end: 20120102
  13. MEROPENEM [Concomitant]
     Route: 065
     Dates: start: 20120130, end: 20120212
  14. SANDOGLOBULIN [Concomitant]
     Route: 065
     Dates: start: 20111226, end: 20111228
  15. VANCOMYCIN [Concomitant]
     Route: 065
     Dates: start: 20120106, end: 20120124
  16. VANCOMYCIN [Concomitant]
     Route: 065
     Dates: start: 20120131, end: 20120212

REACTIONS (4)
  - FEBRILE NEUTROPENIA [None]
  - PNEUMONIA [None]
  - NEUTROPHIL COUNT DECREASED [None]
  - PLATELET COUNT DECREASED [None]
